FAERS Safety Report 4381930-6 (Version None)
Quarter: 2004Q2

REPORT INFORMATION
  Report Type: 
  Country: None (occurrence: None)
  Receive Date: 20040615
  Receipt Date: 20040602
  Transmission Date: 20050107
  Serious: Yes (Hospitalization)
  Sender: FDA-Public Use
  Company Number: 04P-167-0262786-00

PATIENT
  Age: 70 Year
  Sex: Male

DRUGS (7)
  1. DEPAKOTE [Suspect]
     Indication: BIPOLAR I DISORDER
     Dosage: PROGRESSIVE INCREASE 500 MG TO 1250 MG
     Dates: start: 20040405, end: 20040430
  2. DEPAKOTE [Suspect]
     Indication: MANIA
     Dosage: PROGRESSIVE INCREASE 500 MG TO 1250 MG
     Dates: start: 20040405, end: 20040430
  3. ZOPICLONE [Concomitant]
  4. QUININE SULFATE [Concomitant]
  5. ASPIRIN [Concomitant]
  6. RABEPRAZOLE SODIUM [Concomitant]
  7. FLOMAX [Concomitant]

REACTIONS (6)
  - ALANINE AMINOTRANSFERASE INCREASED [None]
  - ASPARTATE AMINOTRANSFERASE INCREASED [None]
  - ATRIAL FIBRILLATION [None]
  - CARDIAC FAILURE CONGESTIVE [None]
  - INCREASED APPETITE [None]
  - OEDEMA [None]
